FAERS Safety Report 4620903-2 (Version None)
Quarter: 2005Q1

REPORT INFORMATION
  Report Type: 
  Country: None (occurrence: None)
  Receive Date: 20050325
  Receipt Date: 20050317
  Transmission Date: 20050727
  Serious: Yes (Life-Threatening, Hospitalization)
  Sender: FDA-Public Use
  Company Number: 26369

PATIENT
  Age: 82 Year
  Sex: Male

DRUGS (11)
  1. NITROGLYCERIN [Suspect]
     Route: 062
  2. FLUCONAZOLE [Suspect]
     Indication: BRONCHITIS
     Dates: start: 20050128, end: 20050202
  3. AMOXICILLIN [Suspect]
     Indication: BRONCHITIS
     Dates: start: 20050202, end: 20050208
  4. RIFAMYCINE (RIFAMYCIN SODIUM) [Suspect]
     Indication: CONJUNCTIVITIS
     Dates: start: 20050202, end: 20050208
  5. ACETAMINOPHEN [Suspect]
     Dates: start: 20050208
  6. ZOCOR [Suspect]
     Route: 048
  7. PRAXINOR (THEODRENALINE HYDROCHLORIDE, CAFEDRINE HYDROCHLORIDE) [Suspect]
     Dosage: 3 DOSAGE FORMS (1 DOSAGE FORMS, 3 IN 1 DAY(S)
     Route: 048
     Dates: end: 20050217
  8. TRUSOPT [Suspect]
  9. KARDEGIC (ACETYLSALICYLATE LYSINE) [Suspect]
     Dosage: 160 MG (160 MG, 1 IN 1 DAY(S))
     Route: 048
     Dates: end: 20050317
  10. STILNOX (ZOLPIDEM) [Suspect]
     Route: 048
     Dates: end: 20050317
  11. PHOSPHALUGEL (ALUMINIUM PHOSPHATE) [Suspect]
     Route: 048
     Dates: end: 20050317

REACTIONS (3)
  - CONJUNCTIVITIS [None]
  - EPISTAXIS [None]
  - THROMBOCYTOPENIC PURPURA [None]
